FAERS Safety Report 8780261 (Version 7)
Quarter: 2013Q1

REPORT INFORMATION
  Report Type: Spontaneous
  Country: US (occurrence: None)
  Receive Date: 20120829
  Receipt Date: 20130311
  Transmission Date: 20140127
  Serious: Yes (Hospitalization, Other)
  Sender: FDA-Public Use
  Company Number: ADR-2012-01586

PATIENT
  Sex: Female

DRUGS (2)
  1. BACLOFEN [Suspect]
     Indication: MUSCLE SPASTICITY
  2. MORPHINE INTRATHECAL [Concomitant]

REACTIONS (12)
  - Delirium [None]
  - Post procedural complication [None]
  - Device damage [None]
  - Pain in extremity [None]
  - Device malfunction [None]
  - Pruritus [None]
  - Weight decreased [None]
  - Insomnia [None]
  - Drug withdrawal syndrome [None]
  - Confusional state [None]
  - Mental status changes [None]
  - Feeling cold [None]
